FAERS Safety Report 5194774-2 (Version None)
Quarter: 2006Q4

REPORT INFORMATION
  Report Type: 
  Country: None (occurrence: None)
  Receive Date: 20061229
  Receipt Date: 20061220
  Transmission Date: 20070319
  Serious: Yes (Disabling)
  Sender: FDA-Public Use
  Company Number: PHRM2006FR03401

PATIENT
  Age: 69 Year
  Sex: Male

DRUGS (4)
  1. ESTRACYT                                /SCH/ [Concomitant]
  2. DECAPEPTYL                              /SCH/ [Concomitant]
  3. TAXOTERE [Concomitant]
  4. ZOMETA [Suspect]
     Indication: METASTASES TO BONE
     Dosage: 4 MG, QMO
     Route: 042
     Dates: start: 20050701, end: 20051001

REACTIONS (3)
  - OSTEONECROSIS [None]
  - TOOTH EXTRACTION [None]
  - WOUND DEBRIDEMENT [None]
